FAERS Safety Report 7752751-9 (Version None)
Quarter: 2011Q3

REPORT INFORMATION
  Report Type: 
  Country: None (occurrence: None)
  Receive Date: 20110915
  Receipt Date: 20110912
  Transmission Date: 20111222
  Serious: No
  Sender: FDA-Public Use
  Company Number: US-PFIZER INC-2011214333

PATIENT
  Age: 50 Year
  Sex: Male

DRUGS (4)
  1. CELEXA [Suspect]
     Dosage: 50 MG, UNK
  2. BUPROPION HCL [Suspect]
     Dosage: 300 MG, UNK
  3. GEODON [Suspect]
     Dosage: 160 MG, UNK
  4. SEROQUEL [Suspect]
     Dosage: UNK

REACTIONS (4)
  - RESTLESSNESS [None]
  - EMOTIONAL DISTRESS [None]
  - WITHDRAWAL SYNDROME [None]
  - TREMOR [None]
